FAERS Safety Report 17585027 (Version 1)
Quarter: 2020Q1

REPORT INFORMATION
  Report Type: Spontaneous
  Country: US (occurrence: US)
  Receive Date: 20200324
  Receipt Date: 20200324
  Transmission Date: 20200409
  Serious: Yes (Hospitalization)
  Sender: FDA-Public Use
  Company Number: None

PATIENT
  Age: 62 Year
  Sex: Female

DRUGS (21)
  1. IPRATROPIUM [Concomitant]
     Active Substance: IPRATROPIUM
  2. NAPROXEN. [Concomitant]
     Active Substance: NAPROXEN
  3. BUPROPN [Concomitant]
  4. OMEPRAZOLE. [Concomitant]
     Active Substance: OMEPRAZOLE
  5. SUCRALFATE. [Concomitant]
     Active Substance: SUCRALFATE
  6. CEFUROXIME. [Concomitant]
     Active Substance: CEFUROXIME
  7. PREDNISONE. [Concomitant]
     Active Substance: PREDNISONE
  8. SPIRIVA [Concomitant]
     Active Substance: TIOTROPIUM BROMIDE MONOHYDRATE
  9. AZITHROMYCIN ANHYDROUS. [Concomitant]
     Active Substance: AZITHROMYCIN ANHYDROUS
  10. OXYCODE [Concomitant]
  11. TRAZODONE [Concomitant]
     Active Substance: TRAZODONE HYDROCHLORIDE
  12. ROPINIROLE. [Concomitant]
     Active Substance: ROPINIROLE
  13. SYMBICORY [Concomitant]
  14. ALUTEROL [Concomitant]
  15. XOLAIR [Suspect]
     Active Substance: OMALIZUMAB
     Indication: ASTHMA
     Dosage: ?          OTHER FREQUENCY:EVERY 4 WEEKS;?
     Route: 058
     Dates: start: 20191224
  16. HYDROXYCHLOR [Concomitant]
     Active Substance: HYDROXYCHLOROQUINE
  17. MORPHINE [Concomitant]
     Active Substance: MORPHINE
  18. ONDANSERON [Concomitant]
  19. PREGABALIN. [Concomitant]
     Active Substance: PREGABALIN
  20. BENZONATATE. [Concomitant]
     Active Substance: BENZONATATE
  21. BREO ELLIPTA [Concomitant]
     Active Substance: FLUTICASONE FUROATE\VILANTEROL TRIFENATATE

REACTIONS (1)
  - Pneumonia [None]
